FAERS Safety Report 6892451-0 (Version None)
Quarter: 2010Q3

REPORT INFORMATION
  Report Type: 
  Country: None (occurrence: None)
  Receive Date: 20100731
  Receipt Date: 20080524
  Transmission Date: 20110219
  Serious: No
  Sender: FDA-Public Use
  Company Number: US-PFIZER INC-2008023116

PATIENT
  Sex: Male

DRUGS (4)
  1. AMLODIPINE [Suspect]
     Indication: HYPERTENSION
     Dates: start: 20080207, end: 20080211
  2. VERAPAMIL HYDROCHLORIDE [Suspect]
     Dates: end: 20080201
  3. DEPAKOTE [Concomitant]
  4. KLONOPIN [Concomitant]

REACTIONS (5)
  - ABNORMAL DREAMS [None]
  - ANGER [None]
  - ANXIETY [None]
  - DEPRESSION [None]
  - JOINT SWELLING [None]
